FAERS Safety Report 24465004 (Version 1)
Quarter: 2024Q4

REPORT INFORMATION
  Report Type: Report from Study
  Country: US (occurrence: US)
  Receive Date: 20241018
  Receipt Date: 20241018
  Transmission Date: 20250114
  Serious: No
  Sender: ROCHE
  Company Number: US-ROCHE-3501343

PATIENT
  Age: 65 Year
  Sex: Female

DRUGS (16)
  1. XOLAIR [Suspect]
     Active Substance: OMALIZUMAB
     Indication: Asthma
     Route: 058
  2. XOLAIR [Suspect]
     Active Substance: OMALIZUMAB
  3. OMEGA 3 [Concomitant]
     Active Substance: CAPSAICIN
  4. PLAVIX [Concomitant]
     Active Substance: CLOPIDOGREL BISULFATE
  5. VITAMIN B COMPLEX [Concomitant]
     Active Substance: CYANOCOBALAMIN\DEXPANTHENOL\NIACINAMIDE\PYRIDOXINE HYDROCHLORIDE\RIBOFLAVIN 5^-PHOSPHATE SODIUM\THIA
  6. ALBUTEROL [Concomitant]
     Active Substance: ALBUTEROL
  7. AMLODIPINE [Concomitant]
     Active Substance: AMLODIPINE BESYLATE
  8. ASPIRIN [Concomitant]
     Active Substance: ASPIRIN
  9. ATORVASTATIN [Concomitant]
     Active Substance: ATORVASTATIN
  10. CYCLOBENZAPRINE [Concomitant]
     Active Substance: CYCLOBENZAPRINE
  11. FLUTICASONE PROPIONATE\SALMETEROL XINAFOATE [Concomitant]
     Active Substance: FLUTICASONE PROPIONATE\SALMETEROL XINAFOATE
  12. FOLIC ACID [Concomitant]
     Active Substance: FOLIC ACID
  13. GABAPENTIN [Concomitant]
     Active Substance: GABAPENTIN
  14. LIPITOR [Concomitant]
     Active Substance: ATORVASTATIN CALCIUM
  15. MAGNESIUM OXIDE [Concomitant]
     Active Substance: MAGNESIUM OXIDE
  16. MONTELUKAST [Concomitant]
     Active Substance: MONTELUKAST

REACTIONS (1)
  - Obesity [Unknown]
